FAERS Safety Report 14676824 (Version 1)
Quarter: 2018Q1

REPORT INFORMATION
  Report Type: Spontaneous
  Country: US (occurrence: US)
  Receive Date: 20180324
  Receipt Date: 20180324
  Transmission Date: 20180509
  Serious: Yes (Hospitalization)
  Sender: FDA-Public Use
  Company Number: US-ACCORD-061732

PATIENT
  Age: 37 Year
  Sex: Female
  Weight: 66.2 kg

DRUGS (28)
  1. LEVOFLOXACIN/LEVOFLOXACIN MESYLATE [Concomitant]
     Dates: start: 20170328
  2. ALLOPURINOL. [Concomitant]
     Active Substance: ALLOPURINOL
     Dates: start: 20170328
  3. MACROGOL [Concomitant]
     Active Substance: POLYETHYLENE GLYCOLS
     Dates: start: 20170327, end: 20170328
  4. MEDROXYPROGESTERONE [Concomitant]
     Active Substance: MEDROXYPROGESTERONE
     Dates: start: 20170320
  5. ISOSORBIDE. [Concomitant]
     Active Substance: ISOSORBIDE
     Dates: start: 20170318
  6. GLYCERYL TRINITRATE [Concomitant]
     Active Substance: NITROGLYCERIN
     Dates: start: 20170318
  7. DIPHENHYDRAMINE. [Concomitant]
     Active Substance: DIPHENHYDRAMINE
     Dates: start: 20170320, end: 20170405
  8. PARACETAMOL [Concomitant]
     Active Substance: ACETAMINOPHEN
     Dates: start: 20170318
  9. ACICLOVIR [Concomitant]
     Active Substance: ACYCLOVIR
     Dates: start: 20170318
  10. CAPSAICIN. [Concomitant]
     Active Substance: CAPSAICIN
     Dates: start: 20170318
  11. METOPROLOL. [Concomitant]
     Active Substance: METOPROLOL
     Dates: start: 20170318
  12. TALAZOPARIB [Suspect]
     Active Substance: TALAZOPARIB
     Indication: ACUTE MYELOID LEUKAEMIA
  13. PANTOPRAZOLE [Concomitant]
     Active Substance: PANTOPRAZOLE
     Dosage: , AND FROM 24-MAR-2017 TO 28-MAR-2017
     Dates: start: 20170318
  14. BABY ASPIRIN [Concomitant]
     Active Substance: ASPIRIN
     Dates: start: 20130905, end: 20170330
  15. DECITABINE. [Suspect]
     Active Substance: DECITABINE
     Indication: PRODUCT USED FOR UNKNOWN INDICATION
  16. ONDANSETRON [Concomitant]
     Active Substance: ONDANSETRON
     Dates: start: 20170323, end: 20170327
  17. FAMOTIDINE. [Concomitant]
     Active Substance: FAMOTIDINE
     Dosage: ALSO RECEIVED ON 05-APR-2017.
     Dates: start: 20170330
  18. DOCUSATE [Concomitant]
     Active Substance: DOCUSATE
     Dates: start: 20170318
  19. OMEPRAZOLE. [Concomitant]
     Active Substance: OMEPRAZOLE
     Dates: start: 20170318
  20. SENNOSIDE A+B/SENNOSIDE A+B CALCIUM [Concomitant]
     Dates: start: 20170318
  21. GLUCOSE [Concomitant]
     Active Substance: DEXTROSE
     Dates: start: 20130905
  22. METFORMIN [Concomitant]
     Active Substance: METFORMIN HYDROCHLORIDE
     Dates: start: 20170318
  23. METHADONE [Concomitant]
     Active Substance: METHADONE HYDROCHLORIDE
     Dates: start: 20170318
  24. RANITIDINE. [Concomitant]
     Active Substance: RANITIDINE
     Dates: start: 20170318
  25. ASCORBIC ACID/GLUCOSE [Concomitant]
     Dates: start: 20170319
  26. SULFAMETHOXAZOLE/TRIMETHOPRIM [Concomitant]
     Dates: start: 20170328, end: 20170401
  27. ALTEPLASE. [Concomitant]
     Active Substance: ALTEPLASE
     Dates: start: 20170326
  28. VANCOMYCIN [Concomitant]
     Active Substance: VANCOMYCIN
     Dates: start: 20170327

REACTIONS (1)
  - Febrile neutropenia [Unknown]

NARRATIVE: CASE EVENT DATE: 20171117
